FAERS Safety Report 22384804 (Version 1)
Quarter: 2023Q2

REPORT INFORMATION
  Report Type: Spontaneous
  Country: US (occurrence: None)
  Receive Date: 20230526
  Receipt Date: 20230526
  Transmission Date: 20230721
  Serious: No
  Sender: FDA-Public Use
  Company Number: None

PATIENT
  Sex: Female

DRUGS (21)
  1. VERZENIO [Suspect]
     Active Substance: ABEMACICLIB
     Indication: Breast cancer female
     Dosage: OTHER QUANTITY : 1T;?FREQUENCY : TWICE A DAY;?
     Route: 048
  2. HYDROXYZINE [Concomitant]
     Active Substance: HYDROXYZINE HYDROCHLORIDE
  3. LETROZOLE [Concomitant]
     Active Substance: LETROZOLE
  4. LOPERAMIDE [Suspect]
     Active Substance: LOPERAMIDE
  5. PROCHLORPERAZINE [Concomitant]
     Active Substance: PROCHLORPERAZINE
  6. AMLODIPINE [Concomitant]
     Active Substance: AMLODIPINE BESYLATE
  7. ASPIRIN [Concomitant]
     Active Substance: ASPIRIN
  8. ATORVASTATIN [Concomitant]
     Active Substance: ATORVASTATIN
  9. CLONIDINE [Concomitant]
     Active Substance: CLONIDINE
  10. FERROUS SULFATE [Concomitant]
     Active Substance: FERROUS SULFATE
  11. GABAPENTIN [Concomitant]
     Active Substance: GABAPENTIN
  12. ISOSORBIDE [Concomitant]
     Active Substance: ISOSORBIDE
  13. MELOXICAM [Concomitant]
     Active Substance: MELOXICAM
  14. MIRTAZAPINE [Concomitant]
     Active Substance: MIRTAZAPINE
  15. CLOPIDOGREL [Concomitant]
     Active Substance: CLOPIDOGREL BISULFATE
  16. POTASSIUM CITRATE [Concomitant]
     Active Substance: POTASSIUM CITRATE
  17. CARAFATE [Concomitant]
     Active Substance: SUCRALFATE
  18. METOPROLOL [Concomitant]
  19. VITAMIN B12 [Concomitant]
     Active Substance: CYANOCOBALAMIN
  20. SERTRALINE [Concomitant]
     Active Substance: SERTRALINE HYDROCHLORIDE
  21. OXYCODONE [Concomitant]
     Active Substance: OXYCODONE

REACTIONS (1)
  - Hospice care [None]
